FAERS Safety Report 9216712 (Version 1)
Quarter: 2013Q2

REPORT INFORMATION
  Report Type: Spontaneous
  Country: US (occurrence: US)
  Receive Date: 20130408
  Receipt Date: 20130408
  Transmission Date: 20140414
  Serious: No
  Sender: FDA-Public Use
  Company Number: US-BAYER-2013-043780

PATIENT
  Age: 72 Year
  Sex: Female

DRUGS (2)
  1. ALEVE CAPLET [Suspect]
  2. ADVIL [Concomitant]

REACTIONS (2)
  - Drug ineffective [None]
  - Product quality issue [None]
